FAERS Safety Report 9716713 (Version 1)
Quarter: 2013Q4

REPORT INFORMATION
  Report Type: Spontaneous
  Country: US (occurrence: None)
  Receive Date: 20131126
  Receipt Date: 20131126
  Transmission Date: 20140711
  Serious: Yes (Hospitalization)
  Sender: FDA-Public Use
  Company Number: None

PATIENT
  Age: 73 Year
  Sex: Female
  Weight: 48.5 kg

DRUGS (3)
  1. HALAVEN [Suspect]
     Indication: CERVIX CARCINOMA
     Dosage: DOSE: 1.4 MG D1/D8 ON D1/D8 Q 21 DAY?FREQUENCY: D1/D8 OG Q 21 DAY
     Route: 042
     Dates: start: 20130507, end: 20131023
  2. FERROUS SULFATE [Concomitant]
  3. FOSAMAX [Concomitant]

REACTIONS (7)
  - Vaginal haemorrhage [None]
  - Haematuria [None]
  - Anaemia [None]
  - Citrobacter test positive [None]
  - Klebsiella test positive [None]
  - Urinary tract infection [None]
  - Urinary bladder haemorrhage [None]
